FAERS Safety Report 24318732 (Version 1)
Quarter: 2024Q3

REPORT INFORMATION
  Report Type: Spontaneous
  Country: CA (occurrence: None)
  Receive Date: 20240913
  Receipt Date: 20240913
  Transmission Date: 20241017
  Serious: Yes (Hospitalization, Other)
  Sender: ASTRAZENECA
  Company Number: 2024A206858

PATIENT
  Age: 80 Year
  Sex: Male
  Weight: 89 kg

DRUGS (30)
  1. ACLIDINIUM BROMIDE\FORMOTEROL FUMARATE [Suspect]
     Active Substance: ACLIDINIUM BROMIDE\FORMOTEROL FUMARATE
  2. ROSUVASTATIN [Suspect]
     Active Substance: ROSUVASTATIN\ROSUVASTATIN CALCIUM
  3. ALBUTEROL SULFATE [Suspect]
     Active Substance: ALBUTEROL SULFATE
  4. RAMIPRIL [Suspect]
     Active Substance: RAMIPRIL
  5. CICLESONIDE [Suspect]
     Active Substance: CICLESONIDE
  6. ACETYLCYSTEINE [Suspect]
     Active Substance: ACETYLCYSTEINE
  7. ASPIRIN [Suspect]
     Active Substance: ASPIRIN
  8. AMLODIPINE BESYLATE [Suspect]
     Active Substance: AMLODIPINE BESYLATE
  9. AZITHROMYCIN [Suspect]
     Active Substance: AZITHROMYCIN
  10. BUDESONIDE [Suspect]
     Active Substance: BUDESONIDE
  11. BUDESONIDE\FORMOTEROL [Suspect]
     Active Substance: BUDESONIDE\FORMOTEROL
  12. BUDESONIDE\FORMOTEROL [Suspect]
     Active Substance: BUDESONIDE\FORMOTEROL
  13. BUDESONIDE\FORMOTEROL [Suspect]
     Active Substance: BUDESONIDE\FORMOTEROL
  14. BUDESONIDE\FORMOTEROL [Suspect]
     Active Substance: BUDESONIDE\FORMOTEROL
  15. BUDESONIDE\FORMOTEROL [Suspect]
     Active Substance: BUDESONIDE\FORMOTEROL
  16. DOXYCYCLINE [Suspect]
     Active Substance: DOXYCYCLINE\DOXYCYCLINE HYCLATE
  17. MELATONIN [Suspect]
     Active Substance: MELATONIN
  18. MELATONIN [Suspect]
     Active Substance: MELATONIN
  19. NAPROXEN [Suspect]
     Active Substance: NAPROXEN
  20. PREDNISONE [Suspect]
     Active Substance: PREDNISONE
  21. PREVNAR 13 [Suspect]
     Active Substance: STREPTOCOCCUS PNEUMONIAE TYPE 1 CAPSULAR POLYSACCHARIDE DIPHTHERIA CRM197 PROTEIN CONJUGATE ANTIGEN\
  22. LEVOFLOXACIN [Suspect]
     Active Substance: LEVOFLOXACIN
  23. MESALAMINE [Suspect]
     Active Substance: MESALAMINE
  24. SPIRIVA [Suspect]
     Active Substance: TIOTROPIUM BROMIDE MONOHYDRATE
  25. TAMSULOSIN HYDROCHLORIDE [Suspect]
     Active Substance: TAMSULOSIN HYDROCHLORIDE
  26. AMLODIPINE [Suspect]
     Active Substance: AMLODIPINE BESYLATE
  27. PANTOPRAZOLE SODIUM [Suspect]
     Active Substance: PANTOPRAZOLE SODIUM
  28. PREGABALIN [Suspect]
     Active Substance: PREGABALIN
  29. TIOTROPIUM [Suspect]
     Active Substance: TIOTROPIUM
  30. TIOTROPIUM [Suspect]
     Active Substance: TIOTROPIUM

REACTIONS (8)
  - Benign prostatic hyperplasia [Unknown]
  - Breath sounds abnormal [Unknown]
  - Bronchiectasis [Unknown]
  - Chronic obstructive pulmonary disease [Unknown]
  - Congenital hiatus hernia [Unknown]
  - Full blood count abnormal [Unknown]
  - Malignant melanoma in situ [Unknown]
  - Transient ischaemic attack [Unknown]
